FAERS Safety Report 4838315-5 (Version None)
Quarter: 2005Q4

REPORT INFORMATION
  Report Type: 
  Country: None (occurrence: None)
  Receive Date: 20051123
  Receipt Date: 20051114
  Transmission Date: 20060501
  Serious: Yes (Other)
  Sender: FDA-Public Use
  Company Number: 2005-11-0203

PATIENT
  Age: 36 Year
  Sex: Female

DRUGS (2)
  1. REBETOL [Suspect]
     Indication: CHRONIC HEPATITIS
     Dosage: 1 GM BID ORAL
     Route: 048
     Dates: start: 20010906, end: 20050415
  2. ROFERON-A [Suspect]
     Indication: CHRONIC HEPATITIS
     Dosage: 9 MIU TIW SUBCUTANEOUS
     Route: 058
     Dates: start: 20010906, end: 20050415

REACTIONS (1)
  - HYPERTHYROIDISM [None]
